FAERS Safety Report 7208116-1 (Version None)
Quarter: 2010Q4

REPORT INFORMATION
  Report Type: 
  Country: None (occurrence: None)
  Receive Date: 20101222
  Receipt Date: 20101210
  Transmission Date: 20110411
  Serious: Yes (Hospitalization)
  Sender: FDA-Public Use
  Company Number: UTC-002959

PATIENT
  Age: 50 Year
  Sex: Female
  Weight: 121.4 kg

DRUGS (6)
  1. TYVASO [Suspect]
     Indication: COR PULMONALE CHRONIC
     Dosage: 168 MCG (42 MCG,4 IN 1 D),INHALATION ; 216 MCG (54 MCG,4 IN 1 D),INHALATION
     Route: 055
     Dates: start: 20101122, end: 20101126
  2. TYVASO [Suspect]
     Indication: COR PULMONALE CHRONIC
     Dosage: 168 MCG (42 MCG,4 IN 1 D),INHALATION ; 216 MCG (54 MCG,4 IN 1 D),INHALATION
     Route: 055
     Dates: start: 20101129
  3. REVATIO [Suspect]
  4. LOTREL [Suspect]
  5. LASIX [Suspect]
  6. DIURETICS (DIURETICS) [Concomitant]

REACTIONS (6)
  - ASTHENIA [None]
  - DEHYDRATION [None]
  - FATIGUE [None]
  - HYPOTENSION [None]
  - PULMONARY OEDEMA [None]
  - THROAT IRRITATION [None]
